FAERS Safety Report 7806976-4 (Version None)
Quarter: 2011Q4

REPORT INFORMATION
  Report Type: 
  Country: None (occurrence: None)
  Receive Date: 20111011
  Receipt Date: 20111006
  Transmission Date: 20120403
  Serious: Yes (Other)
  Sender: FDA-Public Use
  Company Number: US-ABBOTT-09P-163-0607868-00

PATIENT
  Sex: Female
  Weight: 65.83 kg

DRUGS (13)
  1. HUMIRA [Suspect]
  2. COLLAGEN [Concomitant]
     Dates: start: 20091015
  3. SYSTANE [Concomitant]
     Indication: DRY EYE
  4. HUMIRA [Suspect]
     Indication: PSORIASIS
     Dates: start: 20110101, end: 20110801
  5. COLLAGEN [Concomitant]
     Indication: URINARY INCONTINENCE
     Dates: start: 20050101, end: 20050101
  6. MEVACOR [Concomitant]
     Indication: BLOOD CHOLESTEROL INCREASED
  7. NORCO [Concomitant]
     Indication: ARTHRALGIA
     Route: 048
  8. PREVACID [Concomitant]
     Indication: GASTRIC DISORDER
  9. MAXZIDE [Concomitant]
     Indication: HYPERTENSION
  10. CYMBALTA [Concomitant]
     Indication: PAIN
  11. SYNTHROID [Concomitant]
     Indication: HYPOTHYROIDISM
  12. VITAMIN D [Concomitant]
     Indication: VITAMIN SUPPLEMENTATION
  13. HUMIRA [Suspect]
     Indication: PSORIATIC ARTHROPATHY
     Route: 058
     Dates: start: 20080606, end: 20101101

REACTIONS (18)
  - FRACTURE [None]
  - MUSCULAR WEAKNESS [None]
  - PSORIASIS [None]
  - SYNOVIAL CYST [None]
  - HYPOAESTHESIA [None]
  - DRY MOUTH [None]
  - INCORRECT DOSE ADMINISTERED [None]
  - HAEMORRHAGE [None]
  - PAIN IN EXTREMITY [None]
  - PSORIATIC ARTHROPATHY [None]
  - LIMB INJURY [None]
  - BREAST MASS [None]
  - ENDOMETRIAL HYPERPLASIA [None]
  - OEDEMA PERIPHERAL [None]
  - ALOPECIA [None]
  - OSTEOCHONDROSIS [None]
  - VAGINAL HAEMORRHAGE [None]
  - GINGIVAL RECESSION [None]
